FAERS Safety Report 14045784 (Version 2)
Quarter: 2017Q4

REPORT INFORMATION
  Report Type: Spontaneous
  Country: BR (occurrence: BR)
  Receive Date: 20171005
  Receipt Date: 20171216
  Transmission Date: 20180321
  Serious: Yes (Other)
  Sender: FDA-Public Use
  Company Number: BR-ROCHE-1997996

PATIENT
  Age: 61 Year
  Sex: Female

DRUGS (6)
  1. AVASTIN [Suspect]
     Active Substance: BEVACIZUMAB
     Indication: UTERINE CANCER
     Route: 065
  2. PACLITAXEL. [Suspect]
     Active Substance: PACLITAXEL
     Indication: UTERINE CANCER
     Route: 065
  3. CARBOPLATIN. [Suspect]
     Active Substance: CARBOPLATIN
     Indication: UTERINE CANCER
     Dosage: 5 AUC
     Route: 065
  4. AVASTIN [Suspect]
     Active Substance: BEVACIZUMAB
     Dosage: MAINTENANCE THERAPY
     Route: 065
     Dates: start: 201705
  5. AVASTIN [Suspect]
     Active Substance: BEVACIZUMAB
     Dosage: MAINTENANCE THERAPY
     Route: 065
     Dates: start: 201606, end: 201703
  6. CISPLATIN. [Concomitant]
     Active Substance: CISPLATIN
     Dosage: TOTAL DOSE OF 50.
     Route: 065

REACTIONS (6)
  - Flank pain [Unknown]
  - Lymphadenopathy [Not Recovered/Not Resolved]
  - Mass excision [Not Recovered/Not Resolved]
  - Pelvic pain [Unknown]
  - Traumatic lung injury [Unknown]
  - Back pain [Unknown]

NARRATIVE: CASE EVENT DATE: 201703
